FAERS Safety Report 11569455 (Version 2)
Quarter: 2015Q4

REPORT INFORMATION
  Report Type: Spontaneous
  Country: US (occurrence: US)
  Receive Date: 20150929
  Receipt Date: 20151222
  Transmission Date: 20160304
  Serious: Yes (Hospitalization, Other)
  Sender: FDA-Public Use
  Company Number: US-BAYER-2015-432555

PATIENT
  Age: 37 Year
  Sex: Female
  Weight: 61.22 kg

DRUGS (2)
  1. MIRENA [Suspect]
     Active Substance: LEVONORGESTREL
     Indication: CONTRACEPTION
     Dosage: 20 MCG/24HR, CONT
     Route: 015
     Dates: start: 20111214, end: 20130321
  2. MIRENA [Suspect]
     Active Substance: LEVONORGESTREL
     Indication: CONTRACEPTION
     Dosage: 20 MCG/24HR, CONT
     Route: 015
     Dates: start: 2006, end: 2010

REACTIONS (13)
  - Device issue [None]
  - Injury [None]
  - Genital haemorrhage [None]
  - Emotional distress [None]
  - Anxiety [None]
  - Sexual dysfunction [None]
  - Depression [None]
  - Device dislocation [None]
  - Uterine perforation [None]
  - Stress [None]
  - Dyspareunia [None]
  - Pain [None]
  - Fear [None]

NARRATIVE: CASE EVENT DATE: 201303
